FAERS Safety Report 25125505 (Version 2)
Quarter: 2025Q1

REPORT INFORMATION
  Report Type: Spontaneous
  Country: BE (occurrence: BE)
  Receive Date: 20250326
  Receipt Date: 20250327
  Transmission Date: 20250408
  Serious: Yes (Life-Threatening, Hospitalization, Other)
  Sender: BRISTOL-MYERS SQUIBB COMPANY
  Company Number: BE-STADA-01360320

PATIENT
  Age: 7 Month
  Sex: Male

DRUGS (5)
  1. DASATINIB [Suspect]
     Active Substance: DASATINIB
     Indication: Infantile fibromatosis
     Route: 048
  2. DASATINIB [Suspect]
     Active Substance: DASATINIB
     Route: 048
  3. DASATINIB [Suspect]
     Active Substance: DASATINIB
     Route: 048
  4. METHOTREXATE [Concomitant]
     Active Substance: METHOTREXATE
     Indication: Infantile fibromatosis
     Route: 042
  5. VINBLASTINE [Concomitant]
     Active Substance: VINBLASTINE
     Indication: Infantile fibromatosis
     Route: 042

REACTIONS (2)
  - Pulmonary hypertension [Recovered/Resolved]
  - Off label use [Unknown]
